FAERS Safety Report 21393000 (Version 1)
Quarter: 2022Q3

REPORT INFORMATION
  Report Type: Spontaneous
  Country: US (occurrence: None)
  Receive Date: 20220928
  Receipt Date: 20220928
  Transmission Date: 20221026
  Serious: Yes (unspecified)
  Sender: FDA-Public Use
  Company Number: None

PATIENT
  Age: 88 Year
  Sex: Female
  Weight: 56.25 kg

DRUGS (11)
  1. LACTULOSE [Suspect]
     Active Substance: LACTULOSE
     Indication: Constipation
     Dosage: OTHER STRENGTH : 10/15 GM/ML;?FREQUENCY : TWICE A DAY;?
     Route: 048
     Dates: start: 20220906, end: 20220925
  2. AMLODIPINE [Concomitant]
     Active Substance: AMLODIPINE BESYLATE
  3. PANTOPRAZOLE SODIUM [Concomitant]
     Active Substance: PANTOPRAZOLE SODIUM
  4. METOPROLOL [Concomitant]
     Active Substance: METOPROLOL
  5. LORAZEPAM [Concomitant]
     Active Substance: LORAZEPAM
  6. ASPIRIN [Concomitant]
     Active Substance: ASPIRIN
  7. Centrum silver vitamin [Concomitant]
  8. MELATONIN [Concomitant]
     Active Substance: MELATONIN
  9. DIETARY SUPPLEMENT [Concomitant]
     Active Substance: DIETARY SUPPLEMENT
  10. GLUCOSAMINE [Concomitant]
     Active Substance: GLUCOSAMINE
  11. CALCIUM CITRATE [Concomitant]
     Active Substance: CALCIUM CITRATE

REACTIONS (4)
  - Emotional distress [None]
  - Confusional state [None]
  - Shock [None]
  - Delirium [None]

NARRATIVE: CASE EVENT DATE: 20220925
